FAERS Safety Report 18513369 (Version 1)
Quarter: 2020Q4

REPORT INFORMATION
  Report Type: Spontaneous
  Country: US (occurrence: US)
  Receive Date: 20201117
  Receipt Date: 20201117
  Transmission Date: 20210114
  Serious: No
  Sender: FDA-Public Use
  Company Number: US-BTGSP-US-BTGSP-20-0226

PATIENT
  Sex: Female

DRUGS (4)
  1. CROFAB [Suspect]
     Active Substance: CROTALIDAE POLYVALENT IMMUNE FAB (OVINE)
     Dosage: 4 VIALS AT 1600 CENTRAL TIME, AS NEEDED
     Route: 042
     Dates: start: 20200727
  2. CROFAB [Suspect]
     Active Substance: CROTALIDAE POLYVALENT IMMUNE FAB (OVINE)
     Dosage: 2 VIALS AT 1200 CENTRAL TIME, AS NEEDED
     Route: 042
     Dates: start: 20200728, end: 20200728
  3. CROFAB [Suspect]
     Active Substance: CROTALIDAE POLYVALENT IMMUNE FAB (OVINE)
     Indication: SNAKE BITE
     Dosage: PARTIAL DOSE OF CROFAB IN THE AMBULANCE.
     Route: 042
  4. CROFAB [Suspect]
     Active Substance: CROTALIDAE POLYVALENT IMMUNE FAB (OVINE)
     Dosage: 2 VIALS AT 0300 CENTRAL TIME, AS NEEDED
     Route: 042
     Dates: start: 20200728

REACTIONS (3)
  - Inappropriate schedule of product administration [Unknown]
  - Underdose [Unknown]
  - Extravasation [Not Recovered/Not Resolved]
